FAERS Safety Report 13192400 (Version 1)
Quarter: 2017Q1

REPORT INFORMATION
  Report Type: Report from Study
  Country: JP (occurrence: JP)
  Receive Date: 20170207
  Receipt Date: 20170207
  Transmission Date: 20170428
  Serious: Yes (Death, Life-Threatening, Hospitalization, Other)
  Sender: FDA-Public Use
  Company Number: PHJP2017JP004009

PATIENT
  Age: 79 Year
  Sex: Male

DRUGS (10)
  1. NEXIUM [Concomitant]
     Active Substance: ESOMEPRAZOLE MAGNESIUM
     Indication: PRODUCT USED FOR UNKNOWN INDICATION
     Dosage: 20 MG, UNK
     Route: 048
     Dates: start: 20160804, end: 20160812
  2. FEBURIC [Concomitant]
     Active Substance: FEBUXOSTAT
     Indication: HYPERURICAEMIA
     Dosage: 10 MG, UNK
     Route: 048
     Dates: end: 20160730
  3. DENOSINE [Concomitant]
     Active Substance: GANCICLOVIR
     Indication: PROPHYLAXIS
     Dosage: 300 MG, UNK
     Route: 065
     Dates: start: 20160804, end: 20160808
  4. FARYDAK [Suspect]
     Active Substance: PANOBINOSTAT
     Indication: PLASMA CELL MYELOMA
     Dosage: 15 MG, QD 6 DOSES/CYCLE
     Route: 048
     Dates: start: 20160720, end: 20160808
  5. BORTEZOMIB [Suspect]
     Active Substance: BORTEZOMIB
     Indication: PLASMA CELL MYELOMA
     Dosage: UNK UNK, QW2
     Route: 058
     Dates: start: 20160720, end: 20160808
  6. MAGMITT [Concomitant]
     Active Substance: MAGNESIUM OXIDE
     Indication: CONSTIPATION
     Dosage: 660-1980MG, SELF-ADJUSTMENT, UNSPECIFIED FREQUENCY
     Route: 048
  7. ITRIZOLE [Concomitant]
     Active Substance: ITRACONAZOLE
     Indication: PROPHYLAXIS
     Dosage: 20 ML, UNK
     Route: 048
  8. HELMITIN S [Concomitant]
     Indication: HAEMORRHOIDS
     Dosage: 1 DF, UNK
     Route: 065
  9. NEXIUM [Concomitant]
     Active Substance: ESOMEPRAZOLE MAGNESIUM
     Dosage: 20 MG, UNK
     Route: 048
  10. DEXAMETHASONE. [Suspect]
     Active Substance: DEXAMETHASONE
     Indication: PLASMA CELL MYELOMA
     Dosage: UNK
     Route: 065
     Dates: start: 20160720, end: 20160808

REACTIONS (7)
  - Plasma cell myeloma [Fatal]
  - Malignant neoplasm progression [Fatal]
  - Loss of consciousness [Recovered/Resolved]
  - Melaena [Recovered/Resolved]
  - Large intestinal ulcer [Unknown]
  - Infection [Unknown]
  - Melaena [Recovered/Resolved]

NARRATIVE: CASE EVENT DATE: 20160803
